FAERS Safety Report 10744013 (Version 4)
Quarter: 2015Q3

REPORT INFORMATION
  Report Type: Spontaneous
  Country: US (occurrence: US)
  Receive Date: 20150128
  Receipt Date: 20150819
  Transmission Date: 20151125
  Serious: Yes (Other)
  Sender: FDA-Public Use
  Company Number: US-BIOGENIDEC-2015BI008686

PATIENT
  Sex: Female
  Weight: 77 kg

DRUGS (19)
  1. ZANAFLEX [Concomitant]
     Active Substance: TIZANIDINE HYDROCHLORIDE
     Dates: start: 2005
  2. KLOR-CON [Concomitant]
     Active Substance: POTASSIUM CHLORIDE
     Dates: start: 2005
  3. GLUCOSAMINE AND CHONDROITIN [Concomitant]
  4. RAVASTATIN [Concomitant]
     Dates: start: 2005
  5. AMPYRA [Concomitant]
     Active Substance: DALFAMPRIDINE
     Indication: MULTIPLE SCLEROSIS
     Route: 048
     Dates: start: 201211, end: 20130515
  6. AMPYRA [Concomitant]
     Active Substance: DALFAMPRIDINE
     Indication: MULTIPLE SCLEROSIS
     Route: 048
  7. CARDIZEM [Concomitant]
     Active Substance: DILTIAZEM HYDROCHLORIDE
     Dates: start: 2011
  8. TECFIDERA [Suspect]
     Active Substance: DIMETHYL FUMARATE
     Indication: MULTIPLE SCLEROSIS
     Route: 048
     Dates: start: 201411
  9. DETROL LA [Concomitant]
     Active Substance: TOLTERODINE TARTRATE
     Dates: start: 2005
  10. VITAMIN D [Concomitant]
     Active Substance: CHOLECALCIFEROL
  11. VITAMIN E [Concomitant]
     Active Substance: .ALPHA.-TOCOPHEROL
  12. GABAPENTIN. [Concomitant]
     Active Substance: GABAPENTIN
     Route: 048
  13. GEMFIBROZIL. [Concomitant]
     Active Substance: GEMFIBROZIL
  14. VITAMIN D3 [Concomitant]
     Active Substance: CHOLECALCIFEROL
     Dates: start: 2005
  15. FISH OIL NATURE MADE [Concomitant]
  16. ALPHA LIPOIC ACID [Concomitant]
     Active Substance: .ALPHA.-LIPOIC ACID
  17. CHLORTHALIDONE. [Concomitant]
     Active Substance: CHLORTHALIDONE
  18. BYSTOLIC [Concomitant]
     Active Substance: NEBIVOLOL HYDROCHLORIDE
     Dates: start: 2000
  19. CALCITRATE [Concomitant]
     Active Substance: CALCIUM CITRATE

REACTIONS (12)
  - Back pain [Not Recovered/Not Resolved]
  - Multiple sclerosis [Unknown]
  - Muscular weakness [Not Recovered/Not Resolved]
  - Drug ineffective [Unknown]
  - Tremor [Not Recovered/Not Resolved]
  - Dizziness [Recovered/Resolved]
  - Gait disturbance [Not Recovered/Not Resolved]
  - Rash [Unknown]
  - Pruritus [Unknown]
  - Dry skin [Unknown]
  - Neuropathy peripheral [Not Recovered/Not Resolved]
  - General physical health deterioration [Unknown]

NARRATIVE: CASE EVENT DATE: 2014
